FAERS Safety Report 7014341-5 (Version None)
Quarter: 2010Q3

REPORT INFORMATION
  Report Type: 
  Country: None (occurrence: None)
  Receive Date: 20100927
  Receipt Date: 20100915
  Transmission Date: 20110219
  Serious: Yes (Hospitalization)
  Sender: FDA-Public Use
  Company Number: US-JNJFOC-20100905774

PATIENT
  Sex: Female
  Weight: 117.94 kg

DRUGS (3)
  1. REMICADE [Suspect]
     Indication: PSORIASIS
     Route: 042
  2. CELEBREX [Concomitant]
     Indication: PAIN
     Route: 048
  3. PERCOCET [Concomitant]
     Indication: PAIN
     Route: 048

REACTIONS (3)
  - MALAISE [None]
  - OEDEMA PERIPHERAL [None]
  - PAIN IN EXTREMITY [None]
